FAERS Safety Report 9452881 (Version 1)
Quarter: 2013Q3

REPORT INFORMATION
  Report Type: Spontaneous
  Country: CN (occurrence: CN)
  Receive Date: 20130812
  Receipt Date: 20130812
  Transmission Date: 20140515
  Serious: Yes (Hospitalization)
  Sender: FDA-Public Use
  Company Number: CN-PFIZER INC-2013229371

PATIENT
  Age: 28 Year
  Sex: Female
  Weight: 46.5 kg

DRUGS (2)
  1. CELEBREX [Suspect]
     Indication: RHEUMATOID ARTHRITIS
     Dosage: 0.2 G, 2X/DAY
     Route: 048
     Dates: start: 20120407, end: 20120410
  2. BUTYLPHTHALIDE [Concomitant]
     Route: 048

REACTIONS (1)
  - Lupus-like syndrome [Recovered/Resolved]
